FAERS Safety Report 21767628 (Version 1)
Quarter: 2022Q4

REPORT INFORMATION
  Report Type: Spontaneous
  Country: TR (occurrence: TR)
  Receive Date: 20221222
  Receipt Date: 20221222
  Transmission Date: 20230113
  Serious: Yes (Life-Threatening, Other)
  Sender: FDA-Public Use
  Company Number: TR-PFIZER INC-PV202200123624

PATIENT
  Age: 51 Year
  Sex: Female

DRUGS (6)
  1. RITUXIMAB [Suspect]
     Active Substance: RITUXIMAB
     Indication: Splenic marginal zone lymphoma
     Dosage: 50 ML HOURLY
     Route: 042
  2. RITUXIMAB [Suspect]
     Active Substance: RITUXIMAB
     Dosage: 50 ML HOURLY, SECOND WEEK
     Route: 042
  3. PHENIRAMINE [Concomitant]
     Active Substance: PHENIRAMINE
     Dosage: 45.5 MG
  4. PHENIRAMINE [Concomitant]
     Active Substance: PHENIRAMINE
     Dosage: 45.5 MG, SECOND WEEK
  5. METHYLPREDNISOLONE [Concomitant]
     Active Substance: METHYLPREDNISOLONE
     Dosage: 60 MG
  6. METHYLPREDNISOLONE [Concomitant]
     Active Substance: METHYLPREDNISOLONE
     Dosage: 60 MG, SECOND WEEK

REACTIONS (4)
  - Thrombocytopenia [Recovered/Resolved]
  - Petechiae [Unknown]
  - Pyrexia [Unknown]
  - Chills [Unknown]
